FAERS Safety Report 9627023 (Version 1)
Quarter: 2013Q4

REPORT INFORMATION
  Report Type: Spontaneous
  Country: CO (occurrence: CO)
  Receive Date: 20131016
  Receipt Date: 20131016
  Transmission Date: 20140711
  Serious: Yes (Other)
  Sender: FDA-Public Use
  Company Number: CO-UCBSA-100220

PATIENT
  Age: 56 Year
  Sex: Female

DRUGS (3)
  1. NEUPRO [Suspect]
     Indication: PARKINSON^S DISEASE
     Dosage: DAILY DOSE: 2 MG
     Route: 062
     Dates: start: 20130522, end: 2013
  2. NEUPRO [Suspect]
     Indication: PARKINSON^S DISEASE
     Dosage: DRUG DOSE INCREASED FROM 2 MG TO 6 MG DAILY DOSE
     Route: 062
     Dates: start: 20130808, end: 2013
  3. NEUPRO [Suspect]
     Indication: PARKINSON^S DISEASE
     Dosage: DRUG DOSE DECREASED TO 4 MG DAILY DOSE
     Route: 062
     Dates: start: 2013, end: 20130916

REACTIONS (3)
  - Hypotension [Unknown]
  - Anxiety [Unknown]
  - Discomfort [Unknown]
